FAERS Safety Report 17421358 (Version 2)
Quarter: 2020Q1

REPORT INFORMATION
  Report Type: Report from Study
  Country: US (occurrence: US)
  Receive Date: 20200214
  Receipt Date: 20200326
  Transmission Date: 20200409
  Serious: Yes (Hospitalization, Other)
  Sender: FDA-Public Use
  Company Number: US-ACTELION-A-NJ2018-175654

PATIENT
  Sex: Female
  Weight: 72.56 kg

DRUGS (6)
  1. VELETRI [Suspect]
     Active Substance: EPOPROSTENOL
     Dosage: 38.5 NG/KG, PER MIN
     Route: 042
  2. VELETRI [Suspect]
     Active Substance: EPOPROSTENOL
     Dosage: 46 NG/KG, PER MIN
     Route: 042
  3. VELETRI [Suspect]
     Active Substance: EPOPROSTENOL
     Indication: PULMONARY ARTERIAL HYPERTENSION
     Dosage: 44 NG/KG, PER MIN
     Route: 042
  4. LETAIRIS [Concomitant]
     Active Substance: AMBRISENTAN
  5. WARFARIN [Concomitant]
     Active Substance: WARFARIN
  6. REVATIO [Concomitant]
     Active Substance: SILDENAFIL CITRATE

REACTIONS (19)
  - Dizziness [Unknown]
  - Hypoxia [Unknown]
  - Asthenia [Unknown]
  - Nasopharyngitis [Unknown]
  - Fatigue [Unknown]
  - Lung transplant [Unknown]
  - Blood potassium decreased [Unknown]
  - Nausea [Unknown]
  - Influenza [Unknown]
  - Hyperhidrosis [Unknown]
  - Hospitalisation [Unknown]
  - Weight increased [Unknown]
  - Haemoptysis [Unknown]
  - Urinary tract infection [Unknown]
  - Dyspnoea exertional [Not Recovered/Not Resolved]
  - Respiratory failure [Unknown]
  - Malaise [Unknown]
  - Headache [Unknown]
  - Fluid retention [Unknown]
